FAERS Safety Report 17174158 (Version 1)
Quarter: 2019Q4

REPORT INFORMATION
  Report Type: Spontaneous
  Country: ES (occurrence: ES)
  Receive Date: 20191219
  Receipt Date: 20191219
  Transmission Date: 20200122
  Serious: Yes (Other)
  Sender: FDA-Public Use
  Company Number: ES-B.I. PHARMACEUTICALS,INC./RIDGEFIELD-2019-12-119699

PATIENT
  Age: 71 Year
  Sex: Male
  Weight: 122 kg

DRUGS (10)
  1. JARDIANCE [Suspect]
     Active Substance: EMPAGLIFLOZIN
     Indication: DIABETES MELLITUS
     Dosage: 1 COMPRIMIDO CADA DIA
     Route: 065
     Dates: start: 20160510
  2. PARACETAMOL [Concomitant]
     Active Substance: ACETAMINOPHEN
     Indication: PRODUCT USED FOR UNKNOWN INDICATION
     Dosage: 1 COMPRIMIDO CADA DIA
     Route: 065
     Dates: start: 20171121
  3. OMEPRAZOL [OMEPRAZOLE] [Concomitant]
     Active Substance: OMEPRAZOLE
     Indication: PRODUCT USED FOR UNKNOWN INDICATION
     Dosage: 1 CAPSULA CADA DIA
     Route: 065
     Dates: start: 20110107
  4. ZOMARIST [VILDAGLIPTIN] [Concomitant]
     Indication: PRODUCT USED FOR UNKNOWN INDICATION
     Dosage: 1 COMPRIMIDO CADA 12 HORAS?ZOMARIST 50/1000MG 60 COMPRIMIDOS RECUB PELIC
     Route: 065
     Dates: start: 20130502
  5. VALSARTAN + HCTZ [Concomitant]
     Active Substance: HYDROCHLOROTHIAZIDE\VALSARTAN
     Indication: PRODUCT USED FOR UNKNOWN INDICATION
     Dosage: 1 COMPRIMIDO CADA DIA?VALSARTAN + HIDROCLOROTIAZIDA (160/25) MG / 28 COMPRIMIDOS RECUBIERTOS
     Route: 065
     Dates: start: 20191022
  6. ZYLORIC [Concomitant]
     Active Substance: ALLOPURINOL
     Indication: PRODUCT USED FOR UNKNOWN INDICATION
     Dosage: 1 COMPRIMIDO CADA DIA
     Route: 065
     Dates: start: 20171121
  7. LIXIANA [Concomitant]
     Active Substance: EDOXABAN TOSYLATE
     Indication: PRODUCT USED FOR UNKNOWN INDICATION
     Dosage: 1 COMPRIMIDO CADA DIA?LIXIANA 60MG 28 COMPRIMIDOS RECUBIERTOS
     Route: 065
     Dates: start: 20191119
  8. BISOPROLOL [Concomitant]
     Active Substance: BISOPROLOL
     Indication: PRODUCT USED FOR UNKNOWN INDICATION
     Dosage: 2 COMPRIMIDOS CADA DIA
     Route: 065
     Dates: start: 20180426
  9. SIMVASTATINA [Concomitant]
     Active Substance: SIMVASTATIN
     Indication: PRODUCT USED FOR UNKNOWN INDICATION
     Dosage: 1 COMPRIMIDO CADA DIA
     Route: 065
     Dates: start: 20110107
  10. CARDURAN NEO [Concomitant]
     Active Substance: DOXAZOSIN MESYLATE
     Indication: PRODUCT USED FOR UNKNOWN INDICATION
     Dosage: 1 COMPRIMIDO CADA DIA
     Route: 065
     Dates: start: 20191022

REACTIONS (4)
  - Oedema peripheral [Not Recovered/Not Resolved]
  - Superinfection mycobacterial [Not Recovered/Not Resolved]
  - Lymphoedema [Not Recovered/Not Resolved]
  - Skin ulcer [Not Recovered/Not Resolved]

NARRATIVE: CASE EVENT DATE: 20191026
